FAERS Safety Report 24647021 (Version 2)
Quarter: 2024Q4

REPORT INFORMATION
  Report Type: Spontaneous
  Country: US (occurrence: US)
  Receive Date: 20241121
  Receipt Date: 20241129
  Transmission Date: 20250115
  Serious: Yes (Life-Threatening, Hospitalization, Other)
  Sender: RANBAXY
  Company Number: US-SUN PHARMACEUTICAL INDUSTRIES LTD-2024R1-479555

PATIENT
  Age: 24 Year
  Sex: Female

DRUGS (2)
  1. LORAZEPAM [Suspect]
     Active Substance: LORAZEPAM
     Indication: Nausea
     Dosage: UNK
     Route: 065
  2. NALBUPHINE [Suspect]
     Active Substance: NALBUPHINE
     Indication: Abdominal pain
     Dosage: UNK
     Route: 065

REACTIONS (1)
  - Condition aggravated [Unknown]
